FAERS Safety Report 9742754 (Version 2)
Quarter: 2013Q4

REPORT INFORMATION
  Report Type: Spontaneous
  Country: US (occurrence: US)
  Receive Date: 20131210
  Receipt Date: 20131210
  Transmission Date: 20140711
  Serious: No
  Sender: FDA-Public Use
  Company Number: US-GILEAD-2009-0025958

PATIENT
  Age: 76 Year
  Sex: Male

DRUGS (14)
  1. LETAIRIS [Suspect]
     Indication: PULMONARY ARTERIAL HYPERTENSION
     Route: 048
     Dates: start: 20091015
  2. LETAIRIS [Suspect]
     Route: 048
     Dates: start: 20091015
  3. TERAZOSIN [Concomitant]
  4. BYSTOLIC [Concomitant]
  5. PLAVIX [Concomitant]
  6. LISINOPRIL [Concomitant]
  7. AMLODIPINE [Concomitant]
  8. HYDROCHLOROTHIAZIDE [Concomitant]
  9. FUROSEMIDE [Concomitant]
  10. CLARITIN [Concomitant]
  11. LEVOXYL [Concomitant]
  12. PROSCAR [Concomitant]
  13. OMEPRAZOLE [Concomitant]
  14. ZINC [Concomitant]

REACTIONS (1)
  - Hepatic enzyme increased [Unknown]
